FAERS Safety Report 6716059-2 (Version None)
Quarter: 2010Q2

REPORT INFORMATION
  Report Type: 
  Country: None (occurrence: None)
  Receive Date: 20100507
  Receipt Date: 20100430
  Transmission Date: 20101027
  Serious: Yes (Other)
  Sender: FDA-Public Use
  Company Number: A0854384A

PATIENT
  Sex: Female

DRUGS (11)
  1. TYKERB [Suspect]
     Dosage: 1250MG PER DAY
     Route: 048
     Dates: start: 20100411
  2. XELODA [Suspect]
     Dosage: 1650MG TWICE PER DAY
     Route: 065
     Dates: start: 20100411
  3. XELODA [Concomitant]
     Route: 065
  4. METFORMIN [Concomitant]
     Route: 065
  5. NORVASC [Concomitant]
     Route: 065
  6. STEMETIL [Concomitant]
     Route: 065
  7. DECADRON [Concomitant]
     Route: 065
  8. PANTOPRAZOLE [Concomitant]
     Route: 065
  9. COLACE [Concomitant]
     Route: 065
  10. LACTULOSE [Concomitant]
     Route: 065
  11. TYLENOL W/ CODEINE NO. 3 [Concomitant]
     Route: 065

REACTIONS (7)
  - ASTHENIA [None]
  - BREAST CANCER METASTATIC [None]
  - DECREASED APPETITE [None]
  - DIARRHOEA [None]
  - INSOMNIA [None]
  - TONGUE DISCOLOURATION [None]
  - VOMITING [None]
